FAERS Safety Report 6988544-X (Version None)
Quarter: 2010Q3

REPORT INFORMATION
  Report Type: 
  Country: None (occurrence: None)
  Receive Date: 20100916
  Receipt Date: 20100910
  Transmission Date: 20110219
  Serious: Yes (Other)
  Sender: FDA-Public Use
  Company Number: JP-PFIZER INC-2010093465

PATIENT
  Age: 12 Year
  Sex: Female

DRUGS (2)
  1. ATARAX [Suspect]
     Indication: RESTLESSNESS
     Dosage: 25 MG, SINGLE
     Dates: start: 20100726, end: 20100726
  2. PRIMPERAN TAB [Suspect]
     Indication: NAUSEA
     Dosage: 10 MG, SINGLE
     Route: 042
     Dates: start: 20100726, end: 20100726

REACTIONS (2)
  - DEPRESSED LEVEL OF CONSCIOUSNESS [None]
  - RESPIRATORY DEPRESSION [None]
